FAERS Safety Report 19910842 (Version 1)
Quarter: 2021Q4

REPORT INFORMATION
  Report Type: Spontaneous
  Country: None (occurrence: ES)
  Receive Date: 20211004
  Receipt Date: 20211004
  Transmission Date: 20220303
  Serious: Yes (Death, Other)
  Sender: FDA-Public Use
  Company Number: None

PATIENT
  Age: 5 Year
  Sex: Male

DRUGS (6)
  1. GANCICLOVIR [Suspect]
     Active Substance: GANCICLOVIR
     Indication: Human herpesvirus 6 infection
     Dosage: 55 MG, EVERY 12 HOUR
     Route: 042
     Dates: start: 20210602, end: 20210630
  2. GANCICLOVIR [Suspect]
     Active Substance: GANCICLOVIR
     Indication: Cytomegalovirus infection
     Dosage: 55 MG, EVERY 12 HOUR
     Route: 042
     Dates: start: 20210602, end: 20210630
  3. COTRIMOXAZOLE [Suspect]
     Active Substance: SULFAMETHOXAZOLE\TRIMETHOPRIM
     Dosage: 60 MG, EVERY 48 HOUR
     Route: 048
     Dates: start: 20210412, end: 20210607
  4. ESMOLOL HYDROCHLORIDE [Suspect]
     Active Substance: ESMOLOL HYDROCHLORIDE
     Dosage: 2086 MG, DAILY
     Route: 041
     Dates: start: 20210518, end: 20210620
  5. HYDRALAZINE HYDROCHLORIDE [Suspect]
     Active Substance: HYDRALAZINE HYDROCHLORIDE
     Dosage: 13.5 MG, 1 TOTAL
     Route: 042
     Dates: start: 20210526, end: 20210613
  6. VALGANCICLOVIR [Suspect]
     Active Substance: VALGANCICLOVIR
     Dosage: 280 MG, DAILY (EVERY 24 HOUR)
     Route: 048
     Dates: start: 20210331, end: 20210602

REACTIONS (5)
  - Hepatotoxicity [Recovered/Resolved]
  - Hyperbilirubinaemia [Recovered/Resolved]
  - Hepatomegaly [Unknown]
  - Product use in unapproved indication [Recovered/Resolved]
  - Product use issue [Recovered/Resolved]

NARRATIVE: CASE EVENT DATE: 20210602
